FAERS Safety Report 6276221-2 (Version None)
Quarter: 2009Q3

REPORT INFORMATION
  Report Type: 
  Country: None (occurrence: None)
  Receive Date: 20090722
  Receipt Date: 20090713
  Transmission Date: 20100115
  Serious: Yes (Other)
  Sender: FDA-Public Use
  Company Number: CA-JNJFOC-20090704890

PATIENT
  Age: 52 Year
  Sex: Male

DRUGS (8)
  1. DARUNAVIR [Suspect]
     Indication: HIV INFECTION
     Route: 048
  2. ETRAVIRINE [Suspect]
     Indication: HIV INFECTION
     Route: 048
  3. ABACAVIR [Suspect]
     Indication: HIV INFECTION
  4. LAMIVUDINE [Suspect]
     Indication: HIV INFECTION
  5. RALTEGRAVIR [Suspect]
     Indication: HIV INFECTION
  6. RITONAVIR [Suspect]
     Indication: HIV INFECTION
  7. STAVUDINE [Suspect]
     Indication: HIV INFECTION
  8. DIDANOSINE [Suspect]
     Indication: HIV INFECTION

REACTIONS (1)
  - PROGRESSIVE EXTERNAL OPHTHALMOPLEGIA [None]
